FAERS Safety Report 25066704 (Version 2)
Quarter: 2025Q1

REPORT INFORMATION
  Report Type: Spontaneous
  Country: JP (occurrence: JP)
  Receive Date: 20250312
  Receipt Date: 20250318
  Transmission Date: 20250408
  Serious: Yes (Other)
  Sender: MERCK SHARP & DOHME LLC
  Company Number: JP-009507513-2412JPN004571

PATIENT
  Sex: Male

DRUGS (7)
  1. SIVEXTRO [Suspect]
     Active Substance: TEDIZOLID PHOSPHATE
     Route: 048
  2. VANCOMYCIN [Concomitant]
     Active Substance: VANCOMYCIN
     Indication: Staphylococcal bacteraemia
     Dosage: DOSE DESCRIPTION : 1 GRAM, Q12H?DAILY DOSE : 2 GRAM
  3. VANCOMYCIN [Concomitant]
     Active Substance: VANCOMYCIN
     Indication: Staphylococcal bacteraemia
     Dosage: DOSE DESCRIPTION : 1.25 GRAM, Q12H?DAILY DOSE : 2.5 GRAM
  4. LINEZOLID [Concomitant]
     Active Substance: LINEZOLID
     Indication: Staphylococcal bacteraemia
     Dosage: DOSE DESCRIPTION : 600 MILLIGRAM, Q12H?DAILY DOSE : 1200 MILLIGRAM
  5. TEICOPLANIN [Concomitant]
     Active Substance: TEICOPLANIN
     Indication: Staphylococcal bacteraemia
     Dosage: DOSE DESCRIPTION : 400 MILLIGRAM, Q12H?DAILY DOSE : 800 MILLIGRAM
  6. TEICOPLANIN [Concomitant]
     Active Substance: TEICOPLANIN
     Indication: Staphylococcal bacteraemia
     Dosage: DOSE DESCRIPTION : 400 MILLIGRAM, Q24H?DAILY DOSE : 400 MILLIGRAM
  7. CLINDAMYCIN [Concomitant]
     Active Substance: CLINDAMYCIN
     Dosage: DOSE DESCRIPTION : 600 MILLIGRAM, Q6H?DAILY DOSE : 2400 MILLIGRAM

REACTIONS (4)
  - Septic shock [Unknown]
  - Infection [Unknown]
  - Product use in unapproved indication [Unknown]
  - Organ failure [Unknown]
